FAERS Safety Report 5738312-1 (Version None)
Quarter: 2008Q2

REPORT INFORMATION
  Report Type: 
  Country: None (occurrence: None)
  Receive Date: 20080514
  Receipt Date: 20080505
  Transmission Date: 20081010
  Serious: Yes (Death)
  Sender: FDA-Public Use
  Company Number: FR-AMGEN-UK269029

PATIENT
  Sex: Male

DRUGS (15)
  1. PANITUMUMAB [Suspect]
     Indication: COLORECTAL CANCER
     Route: 042
     Dates: start: 20080107, end: 20080225
  2. FLUOROURACIL [Concomitant]
  3. IRINOTECAN HCL [Concomitant]
  4. LEUCOVORIN CALCIUM [Concomitant]
  5. GLYCEROL 2.6% [Concomitant]
     Route: 061
     Dates: start: 20080124, end: 20080308
  6. SPIRONOLACTONE [Concomitant]
     Route: 048
     Dates: start: 20080101, end: 20080308
  7. LOXEN [Concomitant]
     Route: 048
     Dates: start: 19880101, end: 20080308
  8. ATENOLOL [Concomitant]
     Route: 048
     Dates: start: 19880101, end: 20080308
  9. ALLOPURINOL [Concomitant]
     Route: 048
     Dates: start: 19880101, end: 20080308
  10. ACETAMINOPHEN [Concomitant]
     Route: 048
     Dates: start: 20080101, end: 20080201
  11. CHLORHEXIDINE GLUCONATE [Concomitant]
     Route: 048
     Dates: start: 20080101, end: 20080201
  12. IMOVANE [Concomitant]
     Route: 048
     Dates: start: 20080225, end: 20080308
  13. DEXAMETHASONE [Concomitant]
     Route: 042
     Dates: start: 20080107, end: 20080225
  14. ZOFRAN [Concomitant]
     Route: 042
     Dates: start: 20080107, end: 20080225
  15. ATROPINE [Concomitant]
     Route: 058
     Dates: start: 20080107, end: 20080225

REACTIONS (1)
  - RECTAL HAEMORRHAGE [None]
